FAERS Safety Report 9354672 (Version 1)
Quarter: 2013Q2

REPORT INFORMATION
  Report Type: Spontaneous
  Country: IT (occurrence: IT)
  Receive Date: 20130619
  Receipt Date: 20130619
  Transmission Date: 20140414
  Serious: Yes (Other)
  Sender: FDA-Public Use
  Company Number: IT-009507513-1306ITA006188

PATIENT
  Age: 78 Year
  Sex: Female

DRUGS (4)
  1. LORTAAN 50 MG COMPRESSE RIVESTITE CON FILM [Suspect]
     Indication: HYPERTENSION
     Dosage: UNK
     Route: 048
     Dates: start: 20130426, end: 20130504
  2. PANTORC [Concomitant]
     Route: 048
  3. LASIX (FUROSEMIDE) [Concomitant]
     Route: 048
  4. COUMADIN [Concomitant]
     Route: 048

REACTIONS (3)
  - Erythema [Recovering/Resolving]
  - Pruritus [Recovering/Resolving]
  - Macule [None]
